FAERS Safety Report 4502845-6 (Version None)
Quarter: 2004Q4

REPORT INFORMATION
  Report Type: 
  Country: None (occurrence: None)
  Receive Date: 20041116
  Receipt Date: 20041116
  Transmission Date: 20050328
  Serious: No
  Sender: FDA-Public Use
  Company Number: None

PATIENT
  Age: 79 Year
  Sex: Male
  Weight: 108.8633 kg

DRUGS (1)
  1. RAPTIVA [Suspect]
     Dosage: ONCE A WEEK IV
     Route: 042

REACTIONS (1)
  - HERPES ZOSTER [None]
